FAERS Safety Report 23281852 (Version 1)
Quarter: 2023Q4

REPORT INFORMATION
  Report Type: Spontaneous
  Country: US (occurrence: US)
  Receive Date: 20231211
  Receipt Date: 20231211
  Transmission Date: 20240109
  Serious: No
  Sender: FDA-Public Use
  Company Number: US-BRISTOL-MYERS SQUIBB COMPANY-2023-177573

PATIENT
  Sex: Male

DRUGS (1)
  1. SOTYKTU [Suspect]
     Active Substance: DEUCRAVACITINIB
     Indication: Psoriasis
     Dosage: DOSE : UNAV;     FREQ : UNAV

REACTIONS (3)
  - Myalgia [Unknown]
  - Asthenia [Unknown]
  - Chromaturia [Unknown]

NARRATIVE: CASE EVENT DATE: 20230101
